FAERS Safety Report 8560351-6 (Version None)
Quarter: 2012Q3

REPORT INFORMATION
  Report Type: 
  Country: None (occurrence: None)
  Receive Date: 20120802
  Receipt Date: 20120725
  Transmission Date: 20120928
  Serious: Yes (Other)
  Sender: FDA-Public Use
  Company Number: JP-VERTEX PHARMACEUTICALS INC.-AE-2012-010995

PATIENT
  Age: 62 Year
  Sex: Female

DRUGS (11)
  1. REBETOL [Concomitant]
     Route: 048
     Dates: start: 20120702
  2. NAUZELIN OD [Concomitant]
     Route: 048
     Dates: start: 20120611, end: 20120617
  3. DIOVAN [Concomitant]
     Route: 048
     Dates: end: 20120611
  4. TELAVIC (TELAPREVIR) [Suspect]
     Route: 048
     Dates: start: 20120611, end: 20120625
  5. PROCHLORPERAZINE [Concomitant]
     Route: 048
     Dates: start: 20120618, end: 20120723
  6. PEG-INTRON [Concomitant]
     Route: 058
     Dates: start: 20120611
  7. REBETOL [Concomitant]
     Indication: HEPATITIS C
     Route: 048
     Dates: start: 20120521, end: 20120610
  8. OLOPATADINE HCL [Concomitant]
     Route: 048
     Dates: start: 20120524
  9. TELAVIC (TELAPREVIR) [Suspect]
     Indication: HEPATITIS C
     Route: 048
     Dates: start: 20120521, end: 20120610
  10. PEG-INTRON [Concomitant]
     Indication: HEPATITIS C
     Route: 058
     Dates: start: 20120521, end: 20120604
  11. REBETOL [Concomitant]
     Route: 048
     Dates: start: 20120611, end: 20120625

REACTIONS (6)
  - ERYTHEMA [None]
  - HYPERURICAEMIA [None]
  - ANAEMIA [None]
  - RASH [None]
  - HYPOPHAGIA [None]
  - RENAL IMPAIRMENT [None]
